FAERS Safety Report 16594550 (Version 1)
Quarter: 2019Q3

REPORT INFORMATION
  Report Type: Other
  Country: US (occurrence: US)
  Receive Date: 20190718
  Receipt Date: 20190718
  Transmission Date: 20191004
  Serious: Yes (Other)
  Sender: FDA-Public Use
  Company Number: US-SWEDISH ORPHAN BIOVITRUM-2019US0391

PATIENT
  Sex: Female

DRUGS (1)
  1. KINERET [Suspect]
     Active Substance: ANAKINRA
     Route: 058
     Dates: end: 20190405

REACTIONS (5)
  - Nausea [Recovering/Resolving]
  - Pharyngeal swelling [Recovering/Resolving]
  - Pain [Recovering/Resolving]
  - Injection site urticaria [Recovering/Resolving]
  - Hypersensitivity [Unknown]
